FAERS Safety Report 19061597 (Version 1)
Quarter: 2021Q1

REPORT INFORMATION
  Report Type: Report from Study
  Country: US (occurrence: US)
  Receive Date: 20210326
  Receipt Date: 20210326
  Transmission Date: 20210420
  Serious: Yes (Hospitalization)
  Sender: FDA-Public Use
  Company Number: US-ROCHE-2142908

PATIENT
  Age: 50 Year
  Sex: Male
  Weight: 83.9 kg

DRUGS (5)
  1. OXALIPLATIN. [Suspect]
     Active Substance: OXALIPLATIN
     Indication: COLON CANCER STAGE III
     Dosage: CYCLES 1?12, 85MG/M2 IV OVER 2 HOURS ON DAY 1
     Route: 042
     Dates: start: 20180126
  2. LEUCOVORIN CALCIUM. [Suspect]
     Active Substance: LEUCOVORIN CALCIUM
     Indication: COLON CANCER STAGE III
     Dosage: CYCLES 1?12, CYCLE = 14 DAYS, OVER 2 HOURS ON DAY 1
     Route: 042
     Dates: start: 20180126
  3. ATEZOLIZUMAB. [Suspect]
     Active Substance: ATEZOLIZUMAB
     Indication: COLON CANCER STAGE III
     Dosage: CYCLES 1?12, MOST RECENT DOSE OF ATEZOLIZUMAB 840MG ON 11/MAY/2018, CYCLES 13?25, CYCLE = 14 DAYS,
     Route: 042
     Dates: start: 20180126, end: 20180525
  4. 5?FLUOROURACIL [Suspect]
     Active Substance: FLUOROURACIL
     Indication: COLON CANCER STAGE III
     Dosage: CYCLES 1?12, CYCLE = 14 DAYS
     Route: 040
     Dates: start: 20180126
  5. 5?FLUOROURACIL [Suspect]
     Active Substance: FLUOROURACIL
     Dosage: 400MG/M2 IV (BOLUS) ON DAY 1 FOLLOWED BY 2400MG/M2 IV OVER 46 HOURS DAYS 1?3
     Route: 040

REACTIONS (9)
  - Pyrexia [Recovered/Resolved]
  - Headache [Recovered/Resolved]
  - Pharyngitis [Recovered/Resolved]
  - Myalgia [Recovered/Resolved]
  - Heart rate increased [Recovered/Resolved]
  - Blood lactic acid increased [Recovered/Resolved]
  - Dyspnoea [Recovered/Resolved]
  - Body temperature increased [Recovered/Resolved]
  - Chest pain [Recovered/Resolved]

NARRATIVE: CASE EVENT DATE: 20180512
